FAERS Safety Report 14359874 (Version 1)
Quarter: 2018Q1

REPORT INFORMATION
  Report Type: Spontaneous
  Country: US (occurrence: US)
  Receive Date: 20180105
  Receipt Date: 20180105
  Transmission Date: 20180509
  Serious: No
  Sender: FDA-Public Use
  Company Number: US-SA-2017SA121716

PATIENT
  Sex: Female

DRUGS (1)
  1. BUSCO RANITIDINE [Suspect]
     Active Substance: RANITIDINE HYDROCHLORIDE
     Indication: GASTROOESOPHAGEAL REFLUX DISEASE
     Route: 048
     Dates: start: 2013, end: 2013

REACTIONS (7)
  - Off label use [Unknown]
  - Lacrimation increased [Unknown]
  - Cough [Unknown]
  - Anxiety [Unknown]
  - Unevaluable event [Unknown]
  - Increased upper airway secretion [Unknown]
  - Stress [Unknown]

NARRATIVE: CASE EVENT DATE: 2013
